FAERS Safety Report 4740408-8 (Version None)
Quarter: 2005Q3

REPORT INFORMATION
  Report Type: 
  Country: None (occurrence: None)
  Receive Date: 20050810
  Receipt Date: 20050802
  Transmission Date: 20060218
  Serious: Yes (Other)
  Sender: FDA-Public Use
  Company Number: BE-JNJFOC-20050700922

PATIENT
  Age: 59 Year
  Sex: Female

DRUGS (14)
  1. INFLIXIMAB [Suspect]
     Indication: RHEUMATOID ARTHRITIS
     Dosage: WEEK 0,2 AND 6 THEN EVERY 8 WEEKS
     Route: 042
  2. METHOTREXATE [Suspect]
     Route: 030
  3. PYRIDOXINE HCL [Concomitant]
     Route: 065
  4. NICOTIBINE [Concomitant]
     Route: 065
  5. RIFADIN [Concomitant]
     Route: 065
  6. TEBRAZID [Concomitant]
     Dosage: 4 CO/DAY
     Route: 065
  7. ALUMINUM HYDROXIDE AND MAGNESIUM TRISILICATE [Concomitant]
     Route: 065
  8. ALUMINUM HYDROXIDE AND MAGNESIUM TRISILICATE [Concomitant]
     Route: 065
  9. TIMOPTIC [Concomitant]
     Route: 065
  10. STILNOCT [Concomitant]
     Route: 065
  11. FOLIC ACID [Concomitant]
     Route: 065
  12. PREDNISOLONE [Concomitant]
     Route: 065
  13. INDOCID [Concomitant]
     Dosage: 25+75
     Route: 065
  14. VIBRA-TABS [Concomitant]
     Dosage: 100 1/DAY
     Route: 065

REACTIONS (2)
  - PLEURISY [None]
  - TUBERCULOSIS [None]
